FAERS Safety Report 24718032 (Version 3)
Quarter: 2024Q4

REPORT INFORMATION
  Report Type: Spontaneous
  Country: SK (occurrence: SK)
  Receive Date: 20241210
  Receipt Date: 20241224
  Transmission Date: 20250114
  Serious: No
  Sender: SANOFI AVENTIS
  Company Number: SK-TEVA-2018-SK-938386

PATIENT
  Age: 45 Year
  Sex: Male
  Weight: 70 kg

DRUGS (7)
  1. PREDNISONE [Suspect]
     Active Substance: PREDNISONE
     Indication: Serpiginous choroiditis
     Dosage: 40 MG, QD
     Dates: start: 200901
  2. PREDNISONE [Suspect]
     Active Substance: PREDNISONE
     Dosage: 60 MG, QD
     Dates: start: 201006
  3. AZATHIOPRINE [Suspect]
     Active Substance: AZATHIOPRINE
     Indication: Serpiginous choroiditis
     Dosage: 75 MG, QD
     Dates: start: 200901, end: 201006
  4. AZATHIOPRINE [Suspect]
     Active Substance: AZATHIOPRINE
     Dosage: 100 MG, QD
     Dates: start: 201006, end: 2012
  5. CYCLOSPORINE [Suspect]
     Active Substance: CYCLOSPORINE
     Indication: Serpiginous choroiditis
     Dosage: 350 MG, QD
     Dates: start: 200901, end: 201006
  6. CYCLOSPORINE [Suspect]
     Active Substance: CYCLOSPORINE
     Dosage: 200 MG, QD
     Dates: start: 201006, end: 2012
  7. METHYLPREDNISOLONE [Suspect]
     Active Substance: METHYLPREDNISOLONE
     Indication: Serpiginous choroiditis
     Dosage: 1000 MG
     Route: 042
     Dates: start: 201006, end: 201006

REACTIONS (1)
  - Herpes zoster [Recovered/Resolved]
